FAERS Safety Report 8019688-1 (Version None)
Quarter: 2012Q1

REPORT INFORMATION
  Report Type: 
  Country: None (occurrence: None)
  Receive Date: 20120103
  Receipt Date: 20111227
  Transmission Date: 20120608
  Serious: Yes (Other)
  Sender: FDA-Public Use
  Company Number: BR-GLAXOSMITHKLINE-A0944699A

PATIENT
  Sex: Male

DRUGS (1)
  1. ALKERAN [Suspect]
     Route: 065

REACTIONS (2)
  - ASTHMA [None]
  - PULMONARY FIBROSIS [None]
